FAERS Safety Report 7523631-9 (Version None)
Quarter: 2011Q2

REPORT INFORMATION
  Report Type: 
  Country: None (occurrence: None)
  Receive Date: 20110603
  Receipt Date: 20110601
  Transmission Date: 20111010
  Serious: Yes (Hospitalization, Other)
  Sender: FDA-Public Use
  Company Number: US-MEDIMMUNE-MEDI-0012454

PATIENT
  Sex: Male
  Weight: 3.677 kg

DRUGS (16)
  1. IPV [Concomitant]
     Dates: start: 20110304, end: 20110304
  2. FLUCONAZOLE [Concomitant]
  3. OMEPRAZOLE [Concomitant]
     Dates: start: 20110106
  4. POLY-VI-SOL [Concomitant]
  5. DTPA [Concomitant]
     Dates: start: 20110304, end: 20110304
  6. HIB [Concomitant]
     Dates: start: 20110304, end: 20110304
  7. BACTROBAN [Concomitant]
     Route: 061
  8. SPIRONOLACTONE [Concomitant]
  9. HEPATITIS B [Concomitant]
     Dates: start: 20110304, end: 20110304
  10. SYNAGIS [Suspect]
     Route: 030
     Dates: start: 20110201, end: 20110201
  11. SYNAGIS [Suspect]
     Route: 030
     Dates: start: 20110301, end: 20110301
  12. ASPIRIN [Concomitant]
  13. ACETAMINOPHEN [Concomitant]
  14. CAPTOPRIL [Concomitant]
  15. PNEUMONIA VACCINE [Concomitant]
     Dates: start: 20110304, end: 20110304
  16. SYNAGIS [Suspect]
     Route: 030
     Dates: start: 20110101, end: 20110101

REACTIONS (2)
  - PNEUMONIA [None]
  - HAEMATOCHEZIA [None]
